FAERS Safety Report 7221000-2 (Version None)
Quarter: 2011Q1

REPORT INFORMATION
  Report Type: 
  Country: None (occurrence: None)
  Receive Date: 20110112
  Receipt Date: 20110110
  Transmission Date: 20110831
  Serious: Yes (Death, Life-Threatening, Hospitalization)
  Sender: FDA-Public Use
  Company Number: BR-BRISTOL-MYERS SQUIBB COMPANY-15470255

PATIENT
  Age: 71 Year
  Sex: Male

DRUGS (12)
  1. TIOTROPIUM BROMIDE [Concomitant]
     Indication: CHRONIC OBSTRUCTIVE PULMONARY DISEASE
     Dates: start: 20080501
  2. SERETIDE [Concomitant]
     Indication: CHRONIC OBSTRUCTIVE PULMONARY DISEASE
     Dosage: 1 DF = 50/250MCG
     Dates: start: 20070301
  3. ONDANSETRON [Concomitant]
     Indication: PROPHYLAXIS OF NAUSEA AND VOMITING
     Dates: start: 20100930, end: 20100930
  4. GLUCOSE [Concomitant]
     Indication: DEHYDRATION
     Dosage: 50%
     Dates: start: 20101007, end: 20101007
  5. CEPHALEXIN [Concomitant]
     Indication: CELLULITIS
     Dates: start: 20101007
  6. CARBOPLATIN [Suspect]
     Indication: NON-SMALL CELL LUNG CANCER
     Dosage: 1 DF = AUC 6 MG/ML/MINT ON DAY 1 OF EACH 21 DAY CYCLE  1 IN 21 DAY
     Route: 042
     Dates: start: 20100930, end: 20101125
  7. NYSTATIN [Concomitant]
     Indication: MUCOSAL INFLAMMATION
     Dosage: 100 UL/ML
     Dates: start: 20101007, end: 20101011
  8. CEPHALEXIN [Concomitant]
     Indication: PHLEBITIS
     Dates: start: 20101007
  9. KETOCONAZOLE [Concomitant]
     Dates: start: 20101007
  10. PACLITAXEL [Suspect]
     Indication: NON-SMALL CELL LUNG CANCER
     Dosage: ON DAY 1 OF EACH 21 DAY CYCLE  1 IN 21 DAY
     Route: 042
     Dates: start: 20100930, end: 20101125
  11. CAPTOPRIL [Concomitant]
     Indication: HYPERTENSION
     Dates: start: 20090301
  12. BICARBONATE [Concomitant]
     Indication: MUCOSAL INFLAMMATION
     Dates: start: 20101007, end: 20101011

REACTIONS (7)
  - NEUTROPENIA [None]
  - MUCOSAL INFLAMMATION [None]
  - RESPIRATORY FAILURE [None]
  - DEHYDRATION [None]
  - URINARY TRACT INFECTION [None]
  - SEPTIC SHOCK [None]
  - PNEUMONIA [None]
